FAERS Safety Report 17815984 (Version 1)
Quarter: 2020Q2

REPORT INFORMATION
  Report Type: Spontaneous
  Country: US (occurrence: US)
  Receive Date: 20200522
  Receipt Date: 20200522
  Transmission Date: 20200714
  Serious: Yes (Hospitalization)
  Sender: FDA-Public Use
  Company Number: None

PATIENT
  Sex: Male
  Weight: 127 kg

DRUGS (2)
  1. PREDNISONE. [Concomitant]
     Active Substance: PREDNISONE
  2. ABIRATERONE ACETATE (748121) [Suspect]
     Active Substance: ABIRATERONE ACETATE
     Dates: end: 20200520

REACTIONS (3)
  - Nausea [None]
  - Flank pain [None]
  - Pyrexia [None]

NARRATIVE: CASE EVENT DATE: 20200520
